FAERS Safety Report 10673135 (Version 2)
Quarter: 2014Q4

REPORT INFORMATION
  Report Type: Spontaneous
  Country: SE (occurrence: SE)
  Receive Date: 20141224
  Receipt Date: 20141224
  Transmission Date: 20150529
  Serious: Yes (Disabling)
  Sender: FDA-Public Use
  Company Number: SE-ABBVIE-13P-150-1162655-00

PATIENT
  Age: 62 Year
  Sex: Female

DRUGS (5)
  1. VAGIFEM [Concomitant]
     Active Substance: ESTRADIOL
     Indication: PRODUCT USED FOR UNKNOWN INDICATION
  2. PREDNISOLON [Concomitant]
     Active Substance: PREDNISOLONE
     Indication: PRODUCT USED FOR UNKNOWN INDICATION
  3. ATENOLOL. [Concomitant]
     Active Substance: ATENOLOL
     Indication: PRODUCT USED FOR UNKNOWN INDICATION
  4. HUMIRA [Suspect]
     Active Substance: ADALIMUMAB
     Indication: COLITIS ULCERATIVE
     Route: 058
     Dates: start: 20130502, end: 20130502
  5. KALCIPOS-D [Concomitant]
     Active Substance: CALCIUM CARBONATE\CHOLECALCIFEROL
     Indication: PRODUCT USED FOR UNKNOWN INDICATION

REACTIONS (12)
  - Ocular hyperaemia [Not Recovered/Not Resolved]
  - Cataract [Not Recovered/Not Resolved]
  - Fatigue [Recovered/Resolved]
  - Dry eye [Unknown]
  - Lymph node pain [Recovered/Resolved]
  - Eye pain [Unknown]
  - Sensory disturbance [Recovered/Resolved]
  - Feeling hot [Recovered/Resolved]
  - Pollakiuria [Recovered/Resolved]
  - Eye disorder [Unknown]
  - Eye irritation [Unknown]
  - Visual impairment [Not Recovered/Not Resolved]

NARRATIVE: CASE EVENT DATE: 201305
